FAERS Safety Report 7898751-X (Version None)
Quarter: 2011Q4

REPORT INFORMATION
  Report Type: 
  Country: None (occurrence: None)
  Receive Date: 20111107
  Receipt Date: 20111025
  Transmission Date: 20120403
  Serious: Yes (Other)
  Sender: FDA-Public Use
  Company Number: BR-MEDIMMUNE-MEDI-0013779

PATIENT
  Sex: Male
  Weight: 5.31 kg

DRUGS (2)
  1. SYNAGIS [Suspect]
     Route: 030
     Dates: start: 20110701, end: 20110801
  2. CAPTOPRIL [Concomitant]
     Indication: HYPERTENSION
     Route: 048
     Dates: start: 20110411

REACTIONS (8)
  - CRYING [None]
  - FATIGUE [None]
  - PARANASAL SINUS HYPERSECRETION [None]
  - DYSPNOEA [None]
  - PNEUMONIA [None]
  - PYREXIA [None]
  - ATRIOVENTRICULAR SEPTAL DEFECT [None]
  - NASOPHARYNGITIS [None]
